FAERS Safety Report 13540285 (Version 1)
Quarter: 2017Q2

REPORT INFORMATION
  Report Type: Report from Study
  Country: IL (occurrence: IL)
  Receive Date: 20170512
  Receipt Date: 20170512
  Transmission Date: 20170830
  Serious: Yes (Other)
  Sender: FDA-Public Use
  Company Number: IL-INCYTE CORPORATION-2017IN001941

PATIENT
  Age: 65 Year
  Sex: Female

DRUGS (2)
  1. JAKAVI [Suspect]
     Active Substance: RUXOLITINIB
     Dosage: 22.5 MG, QD (7.5MG+15MG)
     Route: 048
  2. JAKAVI [Suspect]
     Active Substance: RUXOLITINIB
     Indication: POLYCYTHAEMIA VERA
     Dosage: 30 MG, QD
     Route: 048
     Dates: start: 20160417

REACTIONS (9)
  - Wrong technique in product usage process [Not Recovered/Not Resolved]
  - Vitreous injury [Unknown]
  - Drug intolerance [Unknown]
  - Weight increased [Unknown]
  - Chronic obstructive pulmonary disease [Recovered/Resolved]
  - Incorrect dose administered [Not Recovered/Not Resolved]
  - Cough [Unknown]
  - Visual impairment [Not Recovered/Not Resolved]
  - Headache [Not Recovered/Not Resolved]

NARRATIVE: CASE EVENT DATE: 20170423
